FAERS Safety Report 7983667-0 (Version None)
Quarter: 2011Q4

REPORT INFORMATION
  Report Type: 
  Country: None (occurrence: None)
  Receive Date: 20111215
  Receipt Date: 20111206
  Transmission Date: 20120403
  Serious: Yes (Hospitalization, Disabling)
  Sender: FDA-Public Use
  Company Number: US-ASTRAZENECA-2011SE39059

PATIENT
  Age: 46 Year
  Sex: Female
  Weight: 124.3 kg

DRUGS (7)
  1. NEXIUM [Suspect]
     Route: 048
  2. FLEXERIL [Concomitant]
  3. ULTRACET [Concomitant]
  4. CELEBREX [Concomitant]
  5. MOBIC [Concomitant]
  6. VICODIN [Concomitant]
  7. ULTRAM [Concomitant]

REACTIONS (5)
  - PAIN [None]
  - FATIGUE [None]
  - PAIN IN EXTREMITY [None]
  - MENISCUS LESION [None]
  - OSTEOARTHRITIS [None]
